FAERS Safety Report 6971199-8 (Version None)
Quarter: 2010Q3

REPORT INFORMATION
  Report Type: 
  Country: None (occurrence: None)
  Receive Date: 20100908
  Receipt Date: 20100824
  Transmission Date: 20110219
  Serious: Yes (Hospitalization, Other)
  Sender: FDA-Public Use
  Company Number: TR-MYLANLABS-2010S1015400

PATIENT
  Age: 43 Year
  Sex: Male

DRUGS (4)
  1. CISPLATIN [Suspect]
     Indication: TESTICULAR CANCER METASTATIC
     Dosage: 20 MG/M2 (37MG) FOR 5 DAYS
     Route: 065
  2. ETOPOSIDE [Suspect]
     Indication: TESTICULAR CANCER METASTATIC
     Dosage: 100 MG/M2 (187MG) FOR 5 DAYS
     Route: 065
  3. BLEOMYCIN SULFATE [Suspect]
     Indication: TESTICULAR CANCER METASTATIC
     Dosage: 30MG FOR 2 DAYS
     Route: 065
  4. ATORVASTATIN [Concomitant]
     Indication: CORONARY ARTERY DISEASE
     Route: 065

REACTIONS (2)
  - CORONARY ARTERY THROMBOSIS [None]
  - MYOCARDIAL INFARCTION [None]
